FAERS Safety Report 6079241-6 (Version None)
Quarter: 2009Q1

REPORT INFORMATION
  Report Type: 
  Country: None (occurrence: None)
  Receive Date: 20090216
  Receipt Date: 20090212
  Transmission Date: 20090719
  Serious: Yes (Life-Threatening, Hospitalization)
  Sender: FDA-Public Use
  Company Number: PHHY2009YU05139

PATIENT
  Age: 72 Year
  Sex: Female

DRUGS (2)
  1. EXELON [Suspect]
     Dosage: 9 MG, BID
  2. VALPROIC ACID [Concomitant]
     Dosage: UNK

REACTIONS (2)
  - CEREBRAL HAEMORRHAGE [None]
  - HEMIPARESIS [None]
